FAERS Safety Report 10934235 (Version 2)
Quarter: 2015Q2

REPORT INFORMATION
  Report Type: Spontaneous
  Country: US (occurrence: US)
  Receive Date: 20150320
  Receipt Date: 20150401
  Transmission Date: 20150821
  Serious: No
  Sender: FDA-Public Use
  Company Number: US-009507513-1503USA001670

PATIENT
  Age: 64 Year
  Sex: Female

DRUGS (5)
  1. EMEND [Suspect]
     Active Substance: APREPITANT
     Indication: PROPHYLAXIS OF NAUSEA AND VOMITING
     Dosage: 150 MG, Q3W
     Route: 042
     Dates: start: 20141014, end: 20150303
  2. ALOXI [Concomitant]
     Active Substance: PALONOSETRON HYDROCHLORIDE
  3. ATIVAN [Concomitant]
     Active Substance: LORAZEPAM
  4. DECADRON (BENZALKONIUM CHLORIDE (+) DEXAMETHASONE TEBUTATE (+) DEXTROS [Concomitant]
  5. EMEND [Suspect]
     Active Substance: APREPITANT
     Dosage: 150 MG, Q3W
     Route: 042
     Dates: start: 20141014, end: 20150303

REACTIONS (2)
  - Dyspnoea [Recovered/Resolved]
  - Chest discomfort [Recovered/Resolved]

NARRATIVE: CASE EVENT DATE: 20150303
